FAERS Safety Report 4293934-2 (Version None)
Quarter: 2004Q1

REPORT INFORMATION
  Report Type: 
  Country: None (occurrence: None)
  Receive Date: 20040210
  Receipt Date: 20040127
  Transmission Date: 20041129
  Serious: No
  Sender: FDA-Public Use
  Company Number: 2003-106665-NL

PATIENT
  Age: 30 Year
  Sex: Female

DRUGS (1)
  1. NUVARING [Suspect]
     Indication: CONTRACEPTION
     Dosage: DF VAGINAL
     Route: 067
     Dates: start: 20030118, end: 20030208

REACTIONS (3)
  - CONGENITAL FOOT MALFORMATION [None]
  - MATERNAL DRUGS AFFECTING FOETUS [None]
  - PREGNANCY [None]
